FAERS Safety Report 17684112 (Version 1)
Quarter: 2020Q2

REPORT INFORMATION
  Report Type: Spontaneous
  Country: US (occurrence: US)
  Receive Date: 20200420
  Receipt Date: 20200420
  Transmission Date: 20200714
  Serious: Yes (Hospitalization, Other)
  Sender: FDA-Public Use
  Company Number: US-ROCHE-2584073

PATIENT
  Age: 66 Year
  Sex: Male
  Weight: 74.46 kg

DRUGS (3)
  1. SALINE [SODIUM CHLORIDE] [Concomitant]
     Active Substance: SODIUM CHLORIDE
  2. MAGNESIUM [Concomitant]
     Active Substance: MAGNESIUM
  3. XELODA [Suspect]
     Active Substance: CAPECITABINE
     Indication: RECTAL CANCER STAGE III
     Dosage: NO
     Route: 048
     Dates: start: 2013, end: 2020

REACTIONS (8)
  - Weight decreased [Recovered/Resolved]
  - Renal failure [Not Recovered/Not Resolved]
  - Blood creatinine increased [Recovered/Resolved]
  - Neuropathy peripheral [Not Recovered/Not Resolved]
  - Rectal haemorrhage [Recovered/Resolved]
  - Breath sounds abnormal [Recovered/Resolved]
  - Asthenia [Not Recovered/Not Resolved]
  - Rectourethral fistula [Not Recovered/Not Resolved]

NARRATIVE: CASE EVENT DATE: 201907
